FAERS Safety Report 24878305 (Version 2)
Quarter: 2025Q1

REPORT INFORMATION
  Report Type: Spontaneous
  Country: US (occurrence: US)
  Receive Date: 20250123
  Receipt Date: 20250125
  Transmission Date: 20250409
  Serious: No
  Sender: JOHNSON AND JOHNSON
  Company Number: US-JNJFOC-20241285474

PATIENT

DRUGS (11)
  1. TOPAMAX [Suspect]
     Active Substance: TOPIRAMATE
     Indication: Migraine
     Route: 048
  2. TOPAMAX [Suspect]
     Active Substance: TOPIRAMATE
     Indication: Product used for unknown indication
     Route: 048
  3. TOPAMAX [Suspect]
     Active Substance: TOPIRAMATE
     Route: 048
  4. AMPYRA [Concomitant]
     Active Substance: DALFAMPRIDINE
  5. COPAXONE [Concomitant]
     Active Substance: GLATIRAMER ACETATE
  6. ZOVIRAX [Concomitant]
     Active Substance: ACYCLOVIR
  7. NEURONTIN [Concomitant]
     Active Substance: GABAPENTIN
  8. LASIX [Concomitant]
     Active Substance: FUROSEMIDE
  9. ZETIA [Concomitant]
     Active Substance: EZETIMIBE
  10. PROVIGIL [Concomitant]
     Active Substance: MODAFINIL
  11. HUMAN IMMUNOGLOBULIN G [Concomitant]
     Active Substance: HUMAN IMMUNOGLOBULIN G

REACTIONS (1)
  - Drug ineffective [Unknown]
